FAERS Safety Report 17143444 (Version 1)
Quarter: 2019Q4

REPORT INFORMATION
  Report Type: Spontaneous
  Country: CA (occurrence: CA)
  Receive Date: 20191211
  Receipt Date: 20191211
  Transmission Date: 20200122
  Serious: Yes (Hospitalization, Disabling, Other)
  Sender: FDA-Public Use
  Company Number: CA-AMERICAN REGENT INC-20190321

PATIENT
  Age: 98 Year
  Sex: Female

DRUGS (5)
  1. VENOFER [Suspect]
     Active Substance: IRON SUCROSE
     Indication: ANAEMIA
     Dosage: 100 MG DAILY FOR 5 DAYS 5 DAYS
     Route: 042
     Dates: start: 20190211, end: 20190215
  2. CITALOPRAM [Concomitant]
     Active Substance: CITALOPRAM HYDROBROMIDE
     Indication: ANXIETY
     Dosage: 5 MG ONCE A DAY
     Route: 048
  3. CANDESARTAN. [Concomitant]
     Active Substance: CANDESARTAN
     Indication: HYPERTENSION
     Dosage: 8 MG ONCE A DAY
     Route: 048
  4. DEXILANT [Concomitant]
     Active Substance: DEXLANSOPRAZOLE
     Dosage: 60 MG ONCE A DAY
     Route: 048
  5. ACEBUTOLOL [Concomitant]
     Active Substance: ACEBUTOLOL
     Indication: HYPERTENSION
     Dosage: 50 MG TWICE DAILY
     Route: 048
     Dates: start: 2019

REACTIONS (4)
  - Peripheral swelling [Recovered/Resolved]
  - Injection site induration [Recovered/Resolved]
  - Thrombophlebitis superficial [Recovered/Resolved]
  - Off label use [Recovered/Resolved]

NARRATIVE: CASE EVENT DATE: 20190211
